FAERS Safety Report 10062199 (Version 2)
Quarter: 2015Q1

REPORT INFORMATION
  Report Type: Spontaneous
  Country: US (occurrence: None)
  Receive Date: 20140312
  Receipt Date: 20150312
  Transmission Date: 20150720
  Serious: Yes (Hospitalization)
  Sender: FDA-Public Use
  Company Number: 1000051953

PATIENT
  Age: 62 Year
  Sex: Female

DRUGS (8)
  1. SAVELLA [Suspect]
     Active Substance: MILNACIPRAN HYDROCHLORIDE
     Indication: FIBROMYALGIA
     Dosage: 100 MG (50 MG, 2 IN 1 D)
     Route: 048
     Dates: start: 20131113, end: 20131121
  2. ZANAFLEX (TIZANIDINE) HYDROCHLORIDE) (TIZANIDINE HYDROCHLORIDE) [Concomitant]
  3. SAVELLA [Suspect]
     Active Substance: MILNACIPRAN HYDROCHLORIDE
     Indication: FIBROMYALGIA
     Route: 048
     Dates: start: 20131030, end: 20131031
  4. NEXIUM (ESOMEPRAZOLE) (ESOMEPRAZOLE) [Concomitant]
  5. AMITIZA (LUBIPROSTONE) (LUBIPROSTONE) [Concomitant]
  6. ATENOLOL (ATENOLOL) (ATENOLOL) [Concomitant]
     Active Substance: ATENOLOL
  7. MOBIX (MELOXICAM) (MELOXICAM) [Concomitant]
  8. ULTRAM (TRAMADOL) (TRAMADOL) [Concomitant]

REACTIONS (1)
  - Suicidal ideation [None]

NARRATIVE: CASE EVENT DATE: 20131121
